FAERS Safety Report 17398249 (Version 1)
Quarter: 2020Q1

REPORT INFORMATION
  Report Type: Report from Study
  Country: NL (occurrence: NL)
  Receive Date: 20200210
  Receipt Date: 20200210
  Transmission Date: 20200409
  Serious: Yes (Hospitalization)
  Sender: FDA-Public Use
  Company Number: NL-MYLANLABS-2020M1014140

PATIENT
  Age: 45 Year
  Sex: Female

DRUGS (5)
  1. AZATHIOPRINE. [Suspect]
     Active Substance: AZATHIOPRINE
     Indication: CROHN^S DISEASE
     Dosage: UNK
  2. ALENDRONINEZUUR [Concomitant]
     Active Substance: ALENDRONIC ACID
     Dosage: 35MG, 1X/W
     Route: 048
     Dates: end: 20180221
  3. FOLIUMZUUR [Concomitant]
     Active Substance: FOLIC ACID
     Dosage: 0.5MG, 1X/D
     Route: 048
     Dates: end: 20180221
  4. HYDROXOCOBALAMINE [Concomitant]
     Active Substance: HYDROXOCOBALAMIN
     Dosage: 1000UG, VOLGENS SCHEMA
     Route: 030
     Dates: end: 20180221
  5. PREDNISON [Concomitant]
     Active Substance: PREDNISONE
     Dosage: 40MG, 1X/D
     Route: 048
     Dates: end: 20180221

REACTIONS (4)
  - Pyrexia [Recovered/Resolved]
  - Pancreatitis [Recovered/Resolved]
  - Hypersensitivity [Recovered/Resolved]
  - Drug interaction [Unknown]

NARRATIVE: CASE EVENT DATE: 20070701
